FAERS Safety Report 19634382 (Version 1)
Quarter: 2021Q3

REPORT INFORMATION
  Report Type: Other
  Country: CN (occurrence: CN)
  Receive Date: 20210730
  Receipt Date: 20210730
  Transmission Date: 20211014
  Serious: Yes (Other)
  Sender: FDA-Public Use
  Company Number: CN-ROCHE-2879826

PATIENT

DRUGS (6)
  1. TRASTUZUMAB. [Suspect]
     Active Substance: TRASTUZUMAB
     Indication: GASTRIC CANCER
     Dosage: INITIAL DOSE
     Route: 041
  2. CISPLATIN. [Concomitant]
     Active Substance: CISPLATIN
     Dosage: FROM DAY 1 TO DAY 3 AT 30 MG/M2/TIME?WITH 21 D AS 1 CYCLE, A TOTAL OF 4 TREATMENT CYCLES WERE CARRIE
     Route: 042
  3. TRASTUZUMAB. [Suspect]
     Active Substance: TRASTUZUMAB
     Route: 042
  4. OXALIPLATIN. [Concomitant]
     Active Substance: OXALIPLATIN
     Dosage: 50 MG/VIAL?FOR 3 H ON THE FIRST DAY AT 130 MG/M2/TIME
     Route: 042
  5. TS?1 [Concomitant]
     Active Substance: GIMERACIL\OTERACIL\TEGAFUR
     Dosage: FROM DAY 1 TO DAY 14, 2 TABLETS/TIME?WITH 21 D AS 1 CYCLE, A TOTAL OF 4 TREATMENT CYCLES WERE CARRIE
     Route: 048
  6. IRINOTECAN HYDROCHLORIDE. [Concomitant]
     Active Substance: IRINOTECAN HYDROCHLORIDE
     Dosage: 100 MG: 5 ML/VIAL?ON DAY 1 AND DAY 8 AT 60 MG/M2/TIME,
     Route: 042

REACTIONS (11)
  - Hepatotoxicity [Unknown]
  - Nausea [Unknown]
  - Vomiting [Unknown]
  - Leukopenia [Unknown]
  - Thrombocytopenia [Unknown]
  - Renal impairment [Unknown]
  - Cardiotoxicity [Unknown]
  - Myelosuppression [Unknown]
  - Mucosal inflammation [Unknown]
  - Anaemia [Unknown]
  - Neurotoxicity [Unknown]
